FAERS Safety Report 14511653 (Version 1)
Quarter: 2018Q1

REPORT INFORMATION
  Report Type: Spontaneous
  Country: US (occurrence: US)
  Receive Date: 20180209
  Receipt Date: 20180209
  Transmission Date: 20180509
  Serious: No
  Sender: FDA-Public Use
  Company Number: US-ENDO PHARMACEUTICALS INC-2017-011892

PATIENT
  Sex: Male

DRUGS (2)
  1. FORTESTA [Suspect]
     Active Substance: TESTOSTERONE
     Indication: PRODUCT USED FOR UNKNOWN INDICATION
     Dosage: 20 MG, TWO PUMPS, UNKNOWN
     Route: 065
     Dates: start: 2017
  2. FORTESTA [Suspect]
     Active Substance: TESTOSTERONE
     Dosage: 40 MG, FOUR PUMPS, UNKNOWN
     Route: 065
     Dates: start: 2017, end: 2017

REACTIONS (3)
  - Rash [Unknown]
  - Semen discolouration [Not Recovered/Not Resolved]
  - Intentional product use issue [Unknown]

NARRATIVE: CASE EVENT DATE: 2017
